FAERS Safety Report 4447968-5 (Version None)
Quarter: 2004Q3

REPORT INFORMATION
  Report Type: 
  Country: None (occurrence: None)
  Receive Date: 20040819
  Receipt Date: 20031017
  Transmission Date: 20050211
  Serious: No
  Sender: FDA-Public Use
  Company Number: APP200301931

PATIENT
  Age: 34 Year
  Sex: Female
  Weight: 44.9061 kg

DRUGS (16)
  1. NEBUPENT [Suspect]
     Indication: INFECTION PROPHYLAXIS
     Dosage: 300 MG (300 MG, 1 IN 4 WK), INHALATION
     Route: 055
     Dates: start: 20030607, end: 20031007
  2. CELEXA [Concomitant]
  3. METRONIDAZOLE [Concomitant]
  4. CEFEPIME (CEFEPIME) [Concomitant]
  5. EPOGEN [Concomitant]
  6. FOLIC ACID [Concomitant]
  7. MULTIVITAMIN (MULTIVITAMINS) [Concomitant]
  8. CALCIUM CARBONATE (CALCIUM CARBONATE) [Concomitant]
  9. PANTOPRAZOLE (PANTOPRAZOLE) [Concomitant]
  10. NYSTATIN (MYSTATIN) [Concomitant]
  11. METOPROLOL TARTRATE [Concomitant]
  12. VORICONAZOLE (VORICONAZOLE) [Concomitant]
  13. GENTAMICIN [Concomitant]
  14. DAPTOMYCIN [Concomitant]
  15. PREDNISONE [Concomitant]
  16. URSODIOL (URSODEOXYCHOLIC ACID) [Concomitant]

REACTIONS (1)
  - RASH ERYTHEMATOUS [None]
